FAERS Safety Report 12600606 (Version 1)
Quarter: 2016Q3

REPORT INFORMATION
  Report Type: Spontaneous
  Country: CA (occurrence: CA)
  Receive Date: 20160727
  Receipt Date: 20160727
  Transmission Date: 20161109
  Serious: Yes (Other)
  Sender: FDA-Public Use
  Company Number: CA-HQ SPECIALTY-CA-2016INT000621

PATIENT
  Age: 65 Year
  Sex: Female

DRUGS (3)
  1. METHOTREXATE SODIUM. [Suspect]
     Active Substance: METHOTREXATE SODIUM
     Indication: RHEUMATOID ARTHRITIS
     Dosage: 2.8571 MG, (20 MG,1 IN 1 W)
     Route: 048
     Dates: start: 20150330
  2. ARAVA [Suspect]
     Active Substance: LEFLUNOMIDE
     Indication: RHEUMATOID ARTHRITIS
     Dosage: 20 MG (20 MG,1 IN 1 D)
     Route: 048
     Dates: end: 20150330
  3. HYDROXYCHLOROQUINE [Suspect]
     Active Substance: HYDROXYCHLOROQUINE
     Indication: RHEUMATOID ARTHRITIS
     Dosage: 400 MG (400 MG, 1 IN 1 D)
     Route: 048

REACTIONS (2)
  - Drug ineffective [Unknown]
  - Hypoaesthesia [Not Recovered/Not Resolved]
